FAERS Safety Report 10224489 (Version 1)
Quarter: 2014Q2

REPORT INFORMATION
  Report Type: Spontaneous
  Country: CA (occurrence: CA)
  Receive Date: 20140609
  Receipt Date: 20140609
  Transmission Date: 20141212
  Serious: Yes (Life-Threatening, Hospitalization)
  Sender: FDA-Public Use
  Company Number: CA-PFIZER INC-2014152939

PATIENT
  Age: 64 Year
  Sex: Male

DRUGS (6)
  1. ATORVASTATIN CALCIUM [Suspect]
     Dosage: 80 MG, 1X/DAY
     Route: 048
  2. LIPITOR [Suspect]
     Dosage: 80 MG, 1X/DAY
     Route: 048
  3. ASPIRIN [Concomitant]
     Dosage: TABLET
  4. CLOPIDOGREL [Concomitant]
     Dosage: TABLET
  5. COLCHICINE [Concomitant]
     Dosage: TABLET
  6. METOPROLOL [Concomitant]
     Dosage: TABLET

REACTIONS (11)
  - Cardiac disorder [Unknown]
  - Cardiovascular disorder [Unknown]
  - Cyst [Unknown]
  - Gait disturbance [Unknown]
  - Gout [Unknown]
  - Local swelling [Unknown]
  - Muscle rupture [Unknown]
  - Myocardial infarction [Unknown]
  - Pain in extremity [Unknown]
  - Phlebitis [Unknown]
  - Angiopathy [Unknown]
